FAERS Safety Report 6143087-0 (Version None)
Quarter: 2009Q2

REPORT INFORMATION
  Report Type: 
  Country: None (occurrence: None)
  Receive Date: 20090403
  Receipt Date: 20090403
  Transmission Date: 20091009
  Serious: Yes (Hospitalization, Other)
  Sender: FDA-Public Use
  Company Number: PHHO2005CH01524

PATIENT
  Sex: Female
  Weight: 58 kg

DRUGS (2)
  1. CGS 20267 T30748+ [Suspect]
     Indication: BREAST CANCER
     Dosage: 2.5 MG, QD- 3 YEARS
     Route: 048
     Dates: end: 20041111
  2. TAMOXIFEN CITRATE [Suspect]
     Dosage: 20 MG, QD-2 YEARS
     Dates: start: 19991102

REACTIONS (11)
  - CARDIOVASCULAR DISORDER [None]
  - ENDOMETRIAL CANCER [None]
  - HAEMATOMA INFECTION [None]
  - HAEMOGLOBIN DECREASED [None]
  - HYSTERECTOMY [None]
  - HYSTEROSCOPY [None]
  - LYMPHADENECTOMY [None]
  - PRURITUS [None]
  - PYREXIA [None]
  - SMALL INTESTINAL HAEMORRHAGE [None]
  - VAGINAL HAEMORRHAGE [None]
